FAERS Safety Report 8179028-4 (Version None)
Quarter: 2012Q1

REPORT INFORMATION
  Report Type: 
  Country: None (occurrence: None)
  Receive Date: 20120302
  Receipt Date: 20120227
  Transmission Date: 20120608
  Serious: Yes (Hospitalization)
  Sender: FDA-Public Use
  Company Number: FR-ROCHE-744721

PATIENT
  Sex: Male
  Weight: 74 kg

DRUGS (2)
  1. VEMURAFENIB [Suspect]
     Route: 048
  2. VEMURAFENIB [Suspect]
     Indication: MALIGNANT MELANOMA
     Route: 048
     Dates: start: 20101115, end: 20101123

REACTIONS (1)
  - HYPERCREATINAEMIA [None]
